FAERS Safety Report 23799843 (Version 1)
Quarter: 2024Q2

REPORT INFORMATION
  Report Type: Other
  Country: TR (occurrence: TR)
  Receive Date: 20240430
  Receipt Date: 20240430
  Transmission Date: 20240716
  Serious: Yes (Other)
  Sender: FDA-Public Use
  Company Number: TR-B.Braun Medical Inc.-2156283

PATIENT
  Age: 5 Year
  Sex: Male

DRUGS (3)
  1. CEFEPIME HYDROCHLORIDE [Suspect]
     Active Substance: CEFEPIME HYDROCHLORIDE
     Indication: Drug hypersensitivity
  2. VANCOMYCIN [Suspect]
     Active Substance: VANCOMYCIN
  3. AMIKACIN [Suspect]
     Active Substance: AMIKACIN

REACTIONS (3)
  - Angioedema [Unknown]
  - Off label use [Unknown]
  - Rash [Unknown]
